FAERS Safety Report 15720689 (Version 4)
Quarter: 2019Q2

REPORT INFORMATION
  Report Type: Spontaneous
  Country: US (occurrence: US)
  Receive Date: 20181213
  Receipt Date: 20190605
  Transmission Date: 20190711
  Serious: Yes (Other)
  Sender: FDA-Public Use
  Company Number: US-009507513-1811USA012164

PATIENT
  Age: 31 Year
  Sex: Female
  Weight: 68.8 kg

DRUGS (1)
  1. NEXPLANON [Suspect]
     Active Substance: ETONOGESTREL
     Indication: CONTRACEPTION
     Dosage: 1 IMPLANT, LEFT ARM (NON-DOMINANT ARM)
     Route: 030
     Dates: start: 20160201, end: 20190320

REACTIONS (11)
  - Device dislocation [Recovered/Resolved]
  - Multiple sclerosis [Unknown]
  - Incorrect product administration duration [Unknown]
  - Complication associated with device [Recovered/Resolved]
  - Constipation [Unknown]
  - Incorrect route of product administration [Unknown]
  - Surgery [Recovered/Resolved]
  - Device deployment issue [Recovered/Resolved]
  - Implant site fibrosis [Recovered/Resolved]
  - Complication of device removal [Recovered/Resolved]
  - Implant site pain [Unknown]

NARRATIVE: CASE EVENT DATE: 20160201
